FAERS Safety Report 24436814 (Version 1)
Quarter: 2024Q4

REPORT INFORMATION
  Report Type: Spontaneous
  Country: US (occurrence: US)
  Receive Date: 20241015
  Receipt Date: 20241015
  Transmission Date: 20250115
  Serious: Yes (Hospitalization, Other)
  Sender: ZYDUS PHARM
  Company Number: US-CADILA HEALTHCARE LIMITED-US-ZYDUS-113422

PATIENT

DRUGS (11)
  1. VERAPAMIL [Suspect]
     Active Substance: VERAPAMIL HYDROCHLORIDE
     Indication: Hypertension
     Dosage: UNK
     Route: 065
  2. NOREPINEPHRINE BITARTRATE [Suspect]
     Active Substance: NOREPINEPHRINE BITARTRATE
     Indication: BRASH syndrome
     Dosage: UNK
     Route: 065
  3. LISINOPRIL [Concomitant]
     Active Substance: LISINOPRIL
     Indication: Hypertension
     Dosage: UNK
     Route: 065
  4. EPINEPHRINE [Concomitant]
     Active Substance: EPINEPHRINE
     Indication: BRASH syndrome
     Dosage: UNK
     Route: 042
  5. CALCIUM [Concomitant]
     Active Substance: CALCIUM
     Indication: BRASH syndrome
     Dosage: UNK
     Route: 042
  6. GLUCAGON [Concomitant]
     Active Substance: GLUCAGON
     Indication: BRASH syndrome
     Dosage: UNK
     Route: 042
  7. ATROPINE [Concomitant]
     Active Substance: ATROPINE
     Indication: BRASH syndrome
     Dosage: UNK
     Route: 065
  8. INSULIN NOS [Concomitant]
     Active Substance: INSULIN NOS
     Indication: BRASH syndrome
     Dosage: UNK, HIGH DOSE
     Route: 065
  9. DEXTROSE [Concomitant]
     Active Substance: DEXTROSE MONOHYDRATE
     Indication: BRASH syndrome
     Dosage: UNK, INFUSION
     Route: 065
  10. SODIUM BICARBONATE [Concomitant]
     Active Substance: SODIUM BICARBONATE
     Indication: BRASH syndrome
     Dosage: UNK
     Route: 042
  11. FAT EMULSION NOS [Concomitant]
     Active Substance: EGG PHOSPHOLIPIDS\SAFFLOWER OIL\SOYBEAN OIL
     Indication: BRASH syndrome
     Dosage: UNK
     Route: 042

REACTIONS (3)
  - BRASH syndrome [Unknown]
  - Drug ineffective [Unknown]
  - Overdose [Unknown]
